FAERS Safety Report 6450135-7 (Version None)
Quarter: 2009Q4

REPORT INFORMATION
  Report Type: 
  Country: None (occurrence: None)
  Receive Date: 20091123
  Receipt Date: 20091112
  Transmission Date: 20100525
  Serious: Yes (Congenital Anomaly)
  Sender: FDA-Public Use
  Company Number: GB-ASTRAZENECA-2009SE26246

PATIENT
  Sex: Male
  Weight: 2.4 kg

DRUGS (4)
  1. QUETIAPINE [Suspect]
     Indication: SCHIZOAFFECTIVE DISORDER
     Route: 064
  2. PROCYCLIDINE HYDROCHLORIDE [Suspect]
     Indication: SCHIZOAFFECTIVE DISORDER
     Route: 064
  3. VENLAFAXINE [Suspect]
     Indication: SCHIZOAFFECTIVE DISORDER
     Route: 064
  4. LEVOTHYROXINE SODIUM [Concomitant]

REACTIONS (3)
  - HYPOSPADIAS [None]
  - MULTIPLE CONGENITAL ABNORMALITIES [None]
  - TALIPES [None]
